FAERS Safety Report 6697011-2 (Version None)
Quarter: 2010Q2

REPORT INFORMATION
  Report Type: 
  Country: None (occurrence: None)
  Receive Date: 20100426
  Receipt Date: 20100413
  Transmission Date: 20101027
  Serious: Yes (Other)
  Sender: FDA-Public Use
  Company Number: SE-JNJFOC-20100406074

PATIENT
  Age: 23 Year
  Sex: Female

DRUGS (3)
  1. TOPIRAMATE [Suspect]
     Indication: EPILEPSY
     Dosage: DOSE IN 1ST TRIMESTER
     Route: 065
  2. CARBAMAZEPINE [Suspect]
     Indication: EPILEPSY
  3. VALPROIC ACID [Suspect]
     Indication: PREGNANCY

REACTIONS (2)
  - DRUG EXPOSURE DURING PREGNANCY [None]
  - INTRA-UTERINE DEATH [None]
